FAERS Safety Report 8175047-2 (Version None)
Quarter: 2012Q1

REPORT INFORMATION
  Report Type: 
  Country: None (occurrence: None)
  Receive Date: 20120229
  Receipt Date: 20120217
  Transmission Date: 20120608
  Serious: Yes (Hospitalization, Other)
  Sender: FDA-Public Use
  Company Number: US-BRISTOL-MYERS SQUIBB COMPANY-16406290

PATIENT
  Age: 76 Year
  Sex: Male
  Weight: 86 kg

DRUGS (1)
  1. YERVOY [Suspect]
     Indication: MALIGNANT MELANOMA
     Dosage: NUMBER OF INFUSIONS 4
     Dates: start: 20110401

REACTIONS (6)
  - METASTASES TO LUNG [None]
  - METASTASES TO CENTRAL NERVOUS SYSTEM [None]
  - SWELLING [None]
  - RASH [None]
  - HYPOPITUITARISM [None]
  - DIARRHOEA [None]
